FAERS Safety Report 11241100 (Version 1)
Quarter: 2015Q3

REPORT INFORMATION
  Report Type: Spontaneous
  Country: US (occurrence: US)
  Receive Date: 20150706
  Receipt Date: 20150706
  Transmission Date: 20151125
  Serious: Yes (Other)
  Sender: FDA-Public Use
  Company Number: US-GILEAD-2015-0161392

PATIENT
  Sex: Female

DRUGS (1)
  1. HARVONI [Suspect]
     Active Substance: LEDIPASVIR\SOFOSBUVIR
     Indication: PRODUCT USED FOR UNKNOWN INDICATION
     Route: 065

REACTIONS (7)
  - Bronchitis [Recovering/Resolving]
  - Splenomegaly [Unknown]
  - Presyncope [Unknown]
  - Renal disorder [Unknown]
  - Weight decreased [Unknown]
  - Suicidal ideation [Unknown]
  - Asthenia [Unknown]

NARRATIVE: CASE EVENT DATE: 20150620
